FAERS Safety Report 8502591-8 (Version None)
Quarter: 2012Q3

REPORT INFORMATION
  Report Type: 
  Country: None (occurrence: None)
  Receive Date: 20120711
  Receipt Date: 20120705
  Transmission Date: 20120928
  Serious: Yes (Other)
  Sender: FDA-Public Use
  Company Number: US-PFIZER INC-2012125171

PATIENT
  Sex: Female
  Weight: 49.433 kg

DRUGS (2)
  1. TIKOSYN [Suspect]
     Indication: HEART RATE INCREASED
     Dosage: 125 UG, 2X/DAY
     Route: 048
     Dates: start: 20100101, end: 20120702
  2. LISINOPRIL [Concomitant]
     Indication: HYPERTENSION
     Dosage: UNK

REACTIONS (1)
  - CARDIAC DISORDER [None]
